FAERS Safety Report 10650797 (Version 1)
Quarter: 2014Q4

REPORT INFORMATION
  Report Type: Spontaneous
  Country: RO (occurrence: RO)
  Receive Date: 20141215
  Receipt Date: 20141215
  Transmission Date: 20150529
  Serious: Yes (Other)
  Sender: FDA-Public Use
  Company Number: PHHY2014RO158352

PATIENT
  Age: 28 Year
  Sex: Female

DRUGS (1)
  1. KETOROLAC [Suspect]
     Active Substance: KETOROLAC\KETOROLAC TROMETHAMINE
     Indication: BACK PAIN
     Route: 065

REACTIONS (8)
  - Palmoplantar keratoderma [Recovered/Resolved]
  - Peripheral swelling [Recovered/Resolved]
  - Skin exfoliation [Recovered/Resolved]
  - Papule [Recovered/Resolved]
  - Skin discolouration [Recovered/Resolved]
  - Discomfort [Recovered/Resolved]
  - Skin wrinkling [Recovered/Resolved]
  - Skin plaque [Recovered/Resolved]
